FAERS Safety Report 17239078 (Version 1)
Quarter: 2020Q1

REPORT INFORMATION
  Report Type: Spontaneous
  Country: US (occurrence: US)
  Receive Date: 20200106
  Receipt Date: 20200106
  Transmission Date: 20200409
  Serious: No
  Sender: FDA-Public Use
  Company Number: US-ABBVIE-19K-163-2887678-00

PATIENT
  Sex: Male

DRUGS (1)
  1. VENCLEXTA [Suspect]
     Active Substance: VENETOCLAX
     Indication: B-CELL LYMPHOMA
     Dosage: TAKE 4 TABLET(S) BY MOUTH WITH MEALS + WATER AT APPROXIMATELY THE SAME TIME EACH DAY
     Route: 048

REACTIONS (2)
  - Sinusitis [Unknown]
  - Off label use [Unknown]
